FAERS Safety Report 4419397-1 (Version None)
Quarter: 2004Q3

REPORT INFORMATION
  Report Type: 
  Country: None (occurrence: None)
  Receive Date: 20040809
  Receipt Date: 20040120
  Transmission Date: 20050211
  Serious: No
  Sender: FDA-Public Use
  Company Number: US-GLAXOSMITHKLINE-A0495307A

PATIENT
  Sex: Male

DRUGS (2)
  1. PAXIL [Suspect]
     Indication: ANXIETY
     Dosage: 20MG UNKNOWN
     Route: 048
     Dates: start: 20010101
  2. ALPRAZOLAM [Suspect]
     Indication: ANXIETY
     Dosage: .25MG PER DAY
     Route: 048

REACTIONS (2)
  - DECREASED INTEREST [None]
  - LOSS OF LIBIDO [None]
